FAERS Safety Report 14726862 (Version 1)
Quarter: 2018Q2

REPORT INFORMATION
  Report Type: Spontaneous
  Country: US (occurrence: US)
  Receive Date: 20180402
  Receipt Date: 20180402
  Transmission Date: 20180711
  Serious: Yes (Hospitalization)
  Sender: FDA-Public Use
  Company Number: None

PATIENT
  Age: 77 Year
  Sex: Male
  Weight: 106.82 kg

DRUGS (1)
  1. WARFARIN [Suspect]
     Active Substance: WARFARIN
     Indication: ATRIAL FIBRILLATION
     Dosage: AS DIRECTED MG EVERY DAY PO
     Route: 048
     Dates: start: 20141224

REACTIONS (3)
  - Fall [None]
  - Retroperitoneal haematoma [None]
  - Haemorrhage [None]

NARRATIVE: CASE EVENT DATE: 20180219
